FAERS Safety Report 7951895 (Version 7)
Quarter: 2013Q3

REPORT INFORMATION
  Report Type: Spontaneous
  Country: FR (occurrence: FR)
  Receive Date: 20110519
  Receipt Date: 20130726
  Transmission Date: 20140515
  Serious: Yes (Congenital Anomaly, Other)
  Sender: FDA-Public Use
  Company Number: FR-ABBOTT-11P-056-0726408-00

PATIENT
  Sex: Male

DRUGS (1)
  1. DEPAKINE CHRONO [Suspect]
     Indication: MATERNAL EXPOSURE TIMING UNSPECIFIED
     Route: 064

REACTIONS (26)
  - Psychomotor retardation [Unknown]
  - Speech disorder [Unknown]
  - Speech disorder [Unknown]
  - Dysgraphia [Unknown]
  - Coordination abnormal [Unknown]
  - Hypospadias [Unknown]
  - Dysmorphism [Unknown]
  - Dysmorphism [Unknown]
  - Congenital oral malformation [Unknown]
  - Hypotonia [Unknown]
  - Congenital teratoma [Unknown]
  - Otitis media [Unknown]
  - Congenital urethral anomaly [Unknown]
  - Otitis media [Unknown]
  - Otitis media [Unknown]
  - Dysmorphism [Unknown]
  - Otitis media [Unknown]
  - Deafness [Unknown]
  - Osteopenia [Unknown]
  - Nervous system disorder [Unknown]
  - Ill-defined disorder [Unknown]
  - Restlessness [Unknown]
  - Drug intolerance [Unknown]
  - Sleep disorder [Unknown]
  - Fatigue [Unknown]
  - Foetal exposure during pregnancy [Unknown]
